FAERS Safety Report 8045430-4 (Version None)
Quarter: 2012Q1

REPORT INFORMATION
  Report Type: 
  Country: None (occurrence: None)
  Receive Date: 20120111
  Receipt Date: 20120111
  Transmission Date: 20120608
  Serious: Yes (Life-Threatening)
  Sender: FDA-Public Use
  Company Number: None

PATIENT
  Sex: Male
  Weight: 86.1834 kg

DRUGS (3)
  1. NEURONTIN [Suspect]
     Indication: NEUROPATHY PERIPHERAL
     Dates: start: 20101201, end: 20110501
  2. MANY [Concomitant]
  3. LYRICA [Suspect]
     Dates: start: 20110501, end: 20110601

REACTIONS (1)
  - THROMBOCYTOPENIA [None]
